FAERS Safety Report 23014319 (Version 2)
Quarter: 2024Q2

REPORT INFORMATION
  Report Type: Report from Study
  Country: BR (occurrence: BR)
  Receive Date: 20231002
  Receipt Date: 20240516
  Transmission Date: 20240715
  Serious: Yes (Hospitalization, Other)
  Sender: FDA-Public Use
  Company Number: BR-BoehringerIngelheim-2023-BI-262089

PATIENT
  Age: 89 Year
  Sex: Female
  Weight: 75 kg

DRUGS (13)
  1. PRADAXA [Suspect]
     Active Substance: DABIGATRAN ETEXILATE MESYLATE
     Indication: Arrhythmia
     Dosage: TWO CAPSULES A DAY, ADMINISTERED THROUGH THE TUBE.
     Dates: start: 201905, end: 202308
  2. PRADAXA [Suspect]
     Active Substance: DABIGATRAN ETEXILATE MESYLATE
     Indication: Procoagulant therapy
     Dosage: ONE CAPSULE A DAY, ADMINISTERED THROUGH THE TUBE.
     Dates: start: 202308
  3. PRADAXA [Suspect]
     Active Substance: DABIGATRAN ETEXILATE MESYLATE
     Dosage: TWO A DAY, ONE EVERY 12 HOURS.
     Route: 048
     Dates: start: 2019, end: 202108
  4. PRADAXA [Suspect]
     Active Substance: DABIGATRAN ETEXILATE MESYLATE
     Dosage: ROUTE OF ADMIN: VIA TUBE.?TWO A DAY, THE MEDICATION IS TRITURATED AND ADMINISTERED VIA TUBE.
     Dates: start: 202108, end: 2024
  5. PRADAXA [Suspect]
     Active Substance: DABIGATRAN ETEXILATE MESYLATE
     Dosage: ROUTE OF ADMIN: VIA TUBE.?ONE A DAY, THE MEDICATION IS TRITURATED AND ADMINISTERED VIA TUBE.
     Dates: start: 2024
  6. CARDIZEM [Suspect]
     Active Substance: DILTIAZEM HYDROCHLORIDE
     Indication: Cerebrovascular accident
     Dosage: 1 TABLET EVERY 12 HOURS.
     Route: 048
     Dates: start: 2019
  7. CARDIZEM [Suspect]
     Active Substance: DILTIAZEM HYDROCHLORIDE
     Indication: Arrhythmia
     Dosage: ONE CAPSULE IN THE MORNING AND ONE IN THE EVENING ADMINISTERED VIA THE TUBE.
     Route: 048
  8. CILOSTAZOL [Concomitant]
     Active Substance: CILOSTAZOL
     Indication: Anticoagulant therapy
     Dosage: BELIEVES IT WOULD BE 100MG - ONE TABLET IN THE MORNING AND ONE IN THE EVENING ADMINISTERED THROUGH T
     Dates: start: 2019
  9. CILOSTAZOL [Concomitant]
     Active Substance: CILOSTAZOL
     Dosage: TWO TABLETS A DAY, MORNING AND EVENING.?ADMINISTERED THROUGH THE TUBE.
  10. ZART [Concomitant]
     Indication: Drug therapy
     Dosage: ONE TABLET IN THE MORNING AND ONE IN THE EVENING ADMINISTERED THROUGH THE TUBE.
     Dates: start: 2017
  11. ESCITALOPRAM [Concomitant]
     Active Substance: ESCITALOPRAM OXALATE
     Indication: Product used for unknown indication
     Dosage: ONE TABLET IN THE MORNING.?ADMINISTERED THROUGH THE TUBE.
  12. ESOMEPRAZOLE [Concomitant]
     Active Substance: ESOMEPRAZOLE
     Indication: Product used for unknown indication
     Dosage: ONE TABLET IN THE MORNING.?ADMINISTERED THROUGH THE TUBE.
  13. DOMPERIDONE [Concomitant]
     Active Substance: DOMPERIDONE
     Indication: Product used for unknown indication
     Dosage: TWO SYRINGES.?ADMINISTERED THROUGH THE TUBE.

REACTIONS (19)
  - Malnutrition [Unknown]
  - Dehydration [Unknown]
  - Necrotising oesophagitis [Unknown]
  - Oesophageal disorder [Unknown]
  - Cerebrovascular accident [Unknown]
  - Gastrostomy [Unknown]
  - Bedridden [Unknown]
  - Wrong technique in product usage process [Not Recovered/Not Resolved]
  - Wrong technique in product usage process [Not Recovered/Not Resolved]
  - Diarrhoea [Recovered/Resolved]
  - Faeces discoloured [Recovered/Resolved]
  - Haemorrhage [Recovered/Resolved]
  - Enteritis infectious [Recovered/Resolved]
  - Haematochezia [Recovered/Resolved]
  - Asthenia [Unknown]
  - Product physical issue [Unknown]
  - Product adhesion issue [Unknown]
  - Somnolence [Unknown]
  - Incorrect route of product administration [Unknown]

NARRATIVE: CASE EVENT DATE: 20210801
